FAERS Safety Report 4886881-6 (Version None)
Quarter: 2006Q1

REPORT INFORMATION
  Report Type: 
  Country: None (occurrence: None)
  Receive Date: 20060119
  Receipt Date: 20051206
  Transmission Date: 20060701
  Serious: Yes (Other)
  Sender: FDA-Public Use
  Company Number: 2005111250

PATIENT
  Age: 55 Year
  Sex: Male

DRUGS (5)
  1. SOLU-MEDROL [Suspect]
     Indication: IMMUNOSUPPRESSION
     Dosage: INTRAVENOUS
     Route: 042
  2. PROGRAF [Suspect]
     Indication: IMMUNOSUPPRESSION
     Dosage: INTRAVENOUS
     Route: 042
  3. CELLCEPT [Suspect]
     Indication: IMMUNOSUPPRESSION
     Dosage: ORAL
     Route: 048
  4. FOY (GABEXATE MESILATE) [Concomitant]
  5. ALPROSTADIL [Concomitant]

REACTIONS (5)
  - CARDIAC FAILURE [None]
  - HEPATIC ARTERY STENOSIS [None]
  - MYOCARDIAL INFARCTION [None]
  - PORTAL VEIN THROMBOSIS [None]
  - SPLENECTOMY [None]
